FAERS Safety Report 9753742 (Version 1)
Quarter: 2013Q4

REPORT INFORMATION
  Report Type: Spontaneous
  Country: US (occurrence: US)
  Receive Date: 20131213
  Receipt Date: 20131213
  Transmission Date: 20140711
  Serious: No
  Sender: FDA-Public Use
  Company Number: US-GILEAD-2010-0026669

PATIENT
  Sex: Male
  Weight: 61.69 kg

DRUGS (14)
  1. LETAIRIS [Suspect]
     Indication: PULMONARY ARTERIAL HYPERTENSION
     Route: 048
     Dates: start: 20090415, end: 20100120
  2. TYVASO [Concomitant]
  3. COUMADIN [Concomitant]
  4. LASIX [Concomitant]
  5. XALATAN [Concomitant]
  6. COMBIGAN [Concomitant]
  7. STARLIX [Concomitant]
  8. OXYCODONE-APAP [Concomitant]
  9. TESTIM [Concomitant]
  10. NEULASTA [Concomitant]
  11. FOSAMAX [Concomitant]
  12. VITAMIN D [Concomitant]
  13. CALCIUM [Concomitant]
  14. MULTIVITAMIN [Concomitant]

REACTIONS (1)
  - Nasal congestion [Unknown]
